FAERS Safety Report 19997262 (Version 2)
Quarter: 2021Q4

REPORT INFORMATION
  Report Type: Spontaneous
  Country: DE (occurrence: DE)
  Receive Date: 20211025
  Receipt Date: 20211215
  Transmission Date: 20220303
  Serious: Yes (Other)
  Sender: FDA-Public Use
  Company Number: DE-BOEHRINGERINGELHEIM-2021-BI-134317

PATIENT
  Age: 63 Year
  Sex: Male

DRUGS (1)
  1. JARDIANCE [Suspect]
     Active Substance: EMPAGLIFLOZIN
     Indication: Type 1 diabetes mellitus
     Dates: start: 20211013, end: 20211014

REACTIONS (3)
  - Ketoacidosis [Unknown]
  - Urine ketone body present [Not Recovered/Not Resolved]
  - Base excess increased [Recovering/Resolving]
